FAERS Safety Report 9426219 (Version 2)
Quarter: 2013Q4

REPORT INFORMATION
  Report Type: Spontaneous
  Country: US (occurrence: US)
  Receive Date: 20130730
  Receipt Date: 20131126
  Transmission Date: 20140711
  Serious: No
  Sender: FDA-Public Use
  Company Number: US-BIOGENIDEC-2013BI069692

PATIENT
  Sex: Female

DRUGS (14)
  1. TYSABRI [Suspect]
     Indication: MULTIPLE SCLEROSIS
     Route: 042
     Dates: start: 20080107, end: 20130607
  2. BACLOFEN [Concomitant]
     Route: 048
  3. LYRICA [Concomitant]
     Route: 048
  4. FIORINAL [Concomitant]
     Route: 048
  5. SAVELLA [Concomitant]
     Route: 048
  6. VITAMIN B-6 [Concomitant]
  7. VITAMIN D-3 [Concomitant]
  8. ZYRTEC-D [Concomitant]
  9. PATADAY [Concomitant]
  10. SYNTHROID [Concomitant]
  11. AMBIEN [Concomitant]
  12. PROVIGIL [Concomitant]
  13. VERAPAMIL [Concomitant]
  14. MECLIZINE [Concomitant]

REACTIONS (15)
  - Dysarthria [Unknown]
  - Depression [Unknown]
  - Pain [Unknown]
  - Gait disturbance [Unknown]
  - Muscular weakness [Unknown]
  - Cognitive disorder [Unknown]
  - Occipital neuralgia [Unknown]
  - Balance disorder [Unknown]
  - Hypoaesthesia [Unknown]
  - Temperature intolerance [Unknown]
  - Stomatitis [Unknown]
  - Dry mouth [Unknown]
  - Dysphemia [Unknown]
  - Fatigue [Unknown]
  - Drug ineffective [Not Recovered/Not Resolved]
